FAERS Safety Report 15518481 (Version 2)
Quarter: 2018Q4

REPORT INFORMATION
  Report Type: Spontaneous
  Country: US (occurrence: US)
  Receive Date: 20181017
  Receipt Date: 20181121
  Transmission Date: 20190205
  Serious: Yes (Other)
  Sender: FDA-Public Use
  Company Number: PHHY2018US101478

PATIENT
  Age: 15 Year
  Sex: Female
  Weight: 64.8 kg

DRUGS (3)
  1. KYMRIAH [Suspect]
     Active Substance: TISAGENLECLEUCEL
     Indication: ACUTE LYMPHOCYTIC LEUKAEMIA
     Dosage: 1.2X10^8 TOTAL
     Route: 042
     Dates: start: 20180618
  2. CYTOXAN [Concomitant]
     Active Substance: CYCLOPHOSPHAMIDE
     Indication: LYMPHOCYTE COUNT INCREASED
     Dosage: 500 MG/M2 OER DOSE
     Route: 065
     Dates: start: 20180613, end: 20180614
  3. FLUDARABINE [Concomitant]
     Active Substance: FLUDARABINE PHOSPHATE
     Indication: LYMPHOCYTE COUNT INCREASED
     Dosage: 30 MG/M2, UNK
     Route: 065
     Dates: start: 20180613, end: 20180616

REACTIONS (6)
  - Malignant neoplasm progression [Unknown]
  - Cytokine release syndrome [Recovering/Resolving]
  - Acute lymphocytic leukaemia recurrent [Unknown]
  - Febrile neutropenia [Unknown]
  - Pyrexia [Recovering/Resolving]
  - Acute myeloid leukaemia [Not Recovered/Not Resolved]

NARRATIVE: CASE EVENT DATE: 20180711
